FAERS Safety Report 6672084-1 (Version None)
Quarter: 2010Q2

REPORT INFORMATION
  Report Type: 
  Country: None (occurrence: None)
  Receive Date: 20100407
  Receipt Date: 20100407
  Transmission Date: 20101027
  Serious: Yes (Hospitalization)
  Sender: FDA-Public Use
  Company Number: None

PATIENT
  Sex: Male

DRUGS (5)
  1. IXABEPILONE - ON DAY 1 OF EVERY CYCLE [Suspect]
     Indication: COLON CANCER METASTATIC
     Dosage: 62 MG CYCLE 1 DAY 1: 03/16/10
  2. SUTENT [Suspect]
     Dosage: 37.5 MG   CYCLE 1 DAY 8: 03/23/10
  3. IMODIUM [Concomitant]
  4. DILTIAZEM CD [Concomitant]
  5. SYNTHROID [Concomitant]

REACTIONS (1)
  - PYREXIA [None]
